FAERS Safety Report 21290905 (Version 4)
Quarter: 2022Q4

REPORT INFORMATION
  Report Type: Spontaneous
  Country: US (occurrence: US)
  Receive Date: 20220903
  Receipt Date: 20221124
  Transmission Date: 20230113
  Serious: No
  Sender: FDA-Public Use
  Company Number: US-UNITED THERAPEUTICS-UNT-2022-018697

PATIENT
  Sex: Female
  Weight: 88.435 kg

DRUGS (13)
  1. ORENITRAM [Suspect]
     Active Substance: TREPROSTINIL
     Indication: Pulmonary arterial hypertension
     Dosage: UNK
     Route: 048
     Dates: start: 20220808
  2. ORENITRAM [Suspect]
     Active Substance: TREPROSTINIL
     Dosage: 1 MG, TID
     Route: 048
  3. ORENITRAM [Suspect]
     Active Substance: TREPROSTINIL
     Dosage: 5 MG, TID
     Route: 048
  4. ORENITRAM [Suspect]
     Active Substance: TREPROSTINIL
     Dosage: 5.5 MG, TID
     Route: 048
  5. ORENITRAM [Suspect]
     Active Substance: TREPROSTINIL
     Indication: Pulmonary arterial hypertension
     Dosage: UNK
     Route: 048
  6. ORENITRAM [Suspect]
     Active Substance: TREPROSTINIL
     Indication: Pulmonary arterial hypertension
     Dosage: UNK
     Route: 048
  7. ORENITRAM [Suspect]
     Active Substance: TREPROSTINIL
     Indication: Pulmonary arterial hypertension
     Dosage: UNK
     Route: 048
  8. REMODULIN [Suspect]
     Active Substance: TREPROSTINIL
     Indication: Pulmonary arterial hypertension
     Dosage: UNK, CONTINUING
     Route: 058
     Dates: start: 20210614, end: 202208
  9. REMODULIN [Suspect]
     Active Substance: TREPROSTINIL
     Dosage: 0.03 ?G/KG, CONTINUING (3 ML PER CASSETTE; RATE OF 62 MCL PER HOUR)
     Route: 058
  10. REMODULIN [Suspect]
     Active Substance: TREPROSTINIL
     Indication: Pulmonary arterial hypertension
     Dosage: UNK, CONTINUING
     Route: 058
     Dates: start: 202208
  11. REMODULIN [Suspect]
     Active Substance: TREPROSTINIL
     Dosage: 0.008 ?G/KG (3 ML PER CASSETTE; RATE OF 42 MCL PER HOUR), CONTINUING
     Route: 058
     Dates: end: 20220827
  12. XARELTO [Concomitant]
     Active Substance: RIVAROXABAN
     Indication: Product used for unknown indication
     Dosage: UNK
     Route: 065
  13. DILTIAZEM [Concomitant]
     Active Substance: DILTIAZEM
     Indication: Product used for unknown indication
     Dosage: UNK
     Route: 065

REACTIONS (13)
  - Pain [Unknown]
  - Dizziness [Unknown]
  - Chest discomfort [Recovered/Resolved]
  - Nausea [Unknown]
  - Headache [Unknown]
  - Jaw disorder [Unknown]
  - Myalgia [Unknown]
  - Pain in jaw [Unknown]
  - Dyspnoea [Not Recovered/Not Resolved]
  - Abdominal discomfort [Unknown]
  - Dyspnoea exertional [Unknown]
  - Fatigue [Unknown]
  - Product use issue [Unknown]

NARRATIVE: CASE EVENT DATE: 20220101
